FAERS Safety Report 18481255 (Version 1)
Quarter: 2020Q4

REPORT INFORMATION
  Report Type: Spontaneous
  Country: JP (occurrence: JP)
  Receive Date: 20201109
  Receipt Date: 20201109
  Transmission Date: 20210114
  Serious: Yes (Other)
  Sender: FDA-Public Use
  Company Number: JP-PFIZER INC-2020395917

PATIENT
  Age: 48 Year
  Sex: Female

DRUGS (1)
  1. IBRANCE [Suspect]
     Active Substance: PALBOCICLIB
     Dosage: 125 MG/DAY, CYCLIC
     Route: 048
     Dates: start: 202009

REACTIONS (3)
  - Neoplasm progression [Unknown]
  - Urinary retention [Unknown]
  - Neutropenia [Recovering/Resolving]
